FAERS Safety Report 15539003 (Version 1)
Quarter: 2018Q4

REPORT INFORMATION
  Report Type: Spontaneous
  Country: BR (occurrence: BR)
  Receive Date: 20181022
  Receipt Date: 20181022
  Transmission Date: 20190205
  Serious: Yes (Other)
  Sender: FDA-Public Use
  Company Number: PHHY2018BR131022

PATIENT
  Age: 59 Year
  Sex: Female
  Weight: 84 kg

DRUGS (1)
  1. ZOMETA [Suspect]
     Active Substance: ZOLEDRONIC ACID
     Indication: OSTEOPOROSIS
     Dosage: 4/100 MG/ML, Q6H
     Route: 042
     Dates: start: 20180921, end: 20180921

REACTIONS (5)
  - Myalgia [Recovered/Resolved]
  - Inappropriate schedule of product administration [Unknown]
  - Spinal pain [Recovered/Resolved]
  - Pelvic pain [Recovered/Resolved]
  - Dyspnoea [Recovered/Resolved]

NARRATIVE: CASE EVENT DATE: 20180921
